FAERS Safety Report 23611064 (Version 1)
Quarter: 2024Q1

REPORT INFORMATION
  Report Type: Spontaneous
  Country: US (occurrence: None)
  Receive Date: 20240308
  Receipt Date: 20240308
  Transmission Date: 20240410
  Serious: No
  Sender: FDA-Public Use
  Company Number: None

PATIENT
  Sex: Male
  Weight: 56.7 kg

DRUGS (8)
  1. CARBOPLATIN [Suspect]
     Active Substance: CARBOPLATIN
     Dates: end: 20240220
  2. CYCLOPHOSPHAMIDE [Suspect]
     Active Substance: CYCLOPHOSPHAMIDE
     Dates: end: 20231230
  3. ETOPOSIDE [Suspect]
     Active Substance: ETOPOSIDE
     Dates: end: 20240222
  4. FILGRASTIM [Suspect]
     Active Substance: FILGRASTIM
     Dates: end: 20240125
  5. IFOSFAMIDE [Suspect]
     Active Substance: IFOSFAMIDE
     Dates: end: 20240222
  6. MESNA [Suspect]
     Active Substance: MESNA
     Dates: end: 20240222
  7. NEULASTA [Suspect]
     Active Substance: PEGFILGRASTIM
     Dates: end: 20240225
  8. TOPOTECAN [Suspect]
     Active Substance: TOPOTECAN HYDROCHLORIDE
     Dates: end: 20231230

REACTIONS (7)
  - Sepsis [None]
  - Nausea [None]
  - Vomiting [None]
  - Abdominal distension [None]
  - Tachycardia [None]
  - Hypotension [None]
  - Blood culture positive [None]

NARRATIVE: CASE EVENT DATE: 20240304
